FAERS Safety Report 14295353 (Version 9)
Quarter: 2018Q4

REPORT INFORMATION
  Report Type: Spontaneous
  Country: US (occurrence: US)
  Receive Date: 20171218
  Receipt Date: 20181206
  Transmission Date: 20190204
  Serious: Yes (Other)
  Sender: FDA-Public Use
  Company Number: US-PFIZER INC-2017354138

PATIENT
  Age: 73 Year
  Sex: Male
  Weight: 77 kg

DRUGS (7)
  1. IBRANCE [Suspect]
     Active Substance: PALBOCICLIB
     Dosage: 100 MG, CYCLIC (ONCE A DAY IN MORNING FOR 21 DAYS AND 7 DAYS OFF)
     Route: 048
     Dates: start: 201707
  2. IBRANCE [Suspect]
     Active Substance: PALBOCICLIB
     Dosage: 75 MG, CYCLIC (21 DAYS AND THEN OFF FOR 7 DAYS)
     Route: 048
     Dates: start: 201712
  3. FULVESTRANT. [Concomitant]
     Active Substance: FULVESTRANT
     Indication: BREAST CANCER STAGE IV
     Dosage: 1 DF, MONTHLY (ONE SHOT IN EACH CHEEK IN MY REAR END)
  4. XGEVA [Concomitant]
     Active Substance: DENOSUMAB
     Indication: BONE DISORDER
     Dosage: 1 DF, EVERY 3 MONTHS (ONE SHOT EVERY THREE MONTHS)
  5. IBRANCE [Suspect]
     Active Substance: PALBOCICLIB
     Indication: BREAST CANCER MALE
     Dosage: 125 MG, UNK
     Dates: start: 201707, end: 201711
  6. IBRANCE [Suspect]
     Active Substance: PALBOCICLIB
     Dosage: 100 MG, CYCLIC (21 DAYS AND THEN IS OFF FOR 7 DAYS)
     Route: 048
     Dates: end: 201712
  7. XGEVA [Concomitant]
     Active Substance: DENOSUMAB
     Indication: BREAST CANCER

REACTIONS (5)
  - Product dispensing error [Unknown]
  - Aspartate aminotransferase increased [Unknown]
  - Alanine aminotransferase increased [Unknown]
  - Liver function test increased [Unknown]
  - Product use issue [Unknown]

NARRATIVE: CASE EVENT DATE: 2017
